FAERS Safety Report 8471931-0 (Version None)
Quarter: 2012Q2

REPORT INFORMATION
  Report Type: 
  Country: None (occurrence: None)
  Receive Date: 20120627
  Receipt Date: 20120618
  Transmission Date: 20120825
  Serious: Yes (Other)
  Sender: FDA-Public Use
  Company Number: US-INCYTE CORPORATION-2012IN000683

PATIENT
  Sex: Male

DRUGS (8)
  1. CRESTOR [Concomitant]
     Dosage: 10 MG, QD
     Route: 048
  2. AMITRIPTYLIN BETA [Concomitant]
     Dosage: 25 MG, QD
     Route: 048
  3. NEXIUM [Concomitant]
     Dosage: 40 MG, QD
     Route: 048
  4. EFFEXOR [Concomitant]
     Dosage: 75 MG, QD
     Route: 048
  5. GABAPENTIN [Concomitant]
     Dosage: 300 MG, BID
     Route: 049
  6. JAKAFI [Suspect]
     Dosage: NOT SPECIFIED
     Route: 048
  7. JAKAFI [Suspect]
     Dosage: 20 MG, BID
     Route: 048
     Dates: start: 20120421, end: 20120425
  8. JAKAFI [Suspect]
     Indication: POLYCYTHAEMIA VERA
     Dosage: 20 MG, BID
     Route: 048
     Dates: end: 20120419

REACTIONS (3)
  - PAIN IN EXTREMITY [None]
  - PERIPHERAL ISCHAEMIA [None]
  - HAEMATOMA [None]
